FAERS Safety Report 5471773-4 (Version None)
Quarter: 2007Q3

REPORT INFORMATION
  Report Type: 
  Country: None (occurrence: None)
  Receive Date: 20070928
  Receipt Date: 20070516
  Transmission Date: 20080115
  Serious: No
  Sender: FDA-Public Use
  Company Number: US-BRISTOL-MYERS SQUIBB COMPANY-13783220

PATIENT
  Age: 43 Year
  Sex: Female
  Weight: 70 kg

DRUGS (6)
  1. DEFINITY [Suspect]
     Indication: ECHOCARDIOGRAM
     Route: 042
  2. IBUPROFEN [Concomitant]
  3. FLEXERIL [Concomitant]
  4. LEVOTHYROXINE SODIUM [Concomitant]
  5. MIRCETTE [Concomitant]
  6. WELLBUTRIN [Concomitant]

REACTIONS (2)
  - BACK PAIN [None]
  - DYSPNOEA [None]
